FAERS Safety Report 14371742 (Version 1)
Quarter: 2018Q1

REPORT INFORMATION
  Report Type: Spontaneous
  Country: IT (occurrence: IT)
  Receive Date: 20180110
  Receipt Date: 20180110
  Transmission Date: 20180509
  Serious: Yes (Hospitalization)
  Sender: FDA-Public Use
  Company Number: IT-PFIZER INC-2018010791

PATIENT
  Age: 90 Year
  Sex: Female

DRUGS (6)
  1. FLECAINIDE [Concomitant]
     Active Substance: FLECAINIDE
     Dosage: UNK
  2. XANAX [Suspect]
     Active Substance: ALPRAZOLAM
     Indication: ANXIETY
     Dosage: 1 DF, 1X/DAY
     Route: 048
     Dates: start: 20170615, end: 20170616
  3. FUROSEMIDE. [Concomitant]
     Active Substance: FUROSEMIDE
  4. RAMIPRIL. [Concomitant]
     Active Substance: RAMIPRIL
  5. PAROXETINE. [Suspect]
     Active Substance: PAROXETINE
     Indication: DEPRESSION
     Dosage: 1 DF, 1X/DAY
     Route: 048
     Dates: start: 20170615, end: 20170616
  6. ACETYLSALICYLIC ACID [Concomitant]
     Active Substance: ASPIRIN

REACTIONS (3)
  - Asthenia [Unknown]
  - Somnolence [Unknown]
  - Hyponatraemia [Unknown]

NARRATIVE: CASE EVENT DATE: 20170701
